FAERS Safety Report 5972014-1 (Version None)
Quarter: 2008Q4

REPORT INFORMATION
  Report Type: 
  Country: None (occurrence: None)
  Receive Date: 20081125
  Receipt Date: 20081113
  Transmission Date: 20090506
  Serious: Yes (Hospitalization, Other)
  Sender: FDA-Public Use
  Company Number: 08H-163-0315195-00

PATIENT
  Age: 2 Year
  Sex: Male

DRUGS (5)
  1. PRECEDEX [Suspect]
     Indication: SEDATION
     Dosage: 0.7MCG/KG/HR, CONTINUOUS, INTRAVENOUS
     Route: 042
     Dates: start: 20070517, end: 20070528
  2. FENTANYL (EENTANYL) [Concomitant]
  3. MIDAZOLAM HCL [Concomitant]
  4. METHADONE HCL [Concomitant]
  5. DIAZEPAM [Concomitant]

REACTIONS (4)
  - CONFUSIONAL STATE [None]
  - DELIRIUM [None]
  - PUPILS UNEQUAL [None]
  - STARING [None]
